FAERS Safety Report 6593358-9 (Version None)
Quarter: 2010Q1

REPORT INFORMATION
  Report Type: 
  Country: None (occurrence: None)
  Receive Date: 20100222
  Receipt Date: 20090313
  Transmission Date: 20100710
  Serious: No
  Sender: FDA-Public Use
  Company Number: US-BRISTOL-MYERS SQUIBB COMPANY-14518369

PATIENT
  Age: 72 Year
  Sex: Female
  Weight: 101 kg

DRUGS (6)
  1. ORENCIA [Suspect]
     Indication: RHEUMATOID ARTHRITIS
     Dosage: 1DF=3 VIALS.18SEP08:8F40363,03/2011,3VIALS.STOPPED-02/OCT/08.30OCT08:3VIALS,8G34783,03/2011.
     Route: 042
     Dates: start: 20080904
  2. ARAVA [Concomitant]
  3. PREDNISONE [Concomitant]
  4. PAXIL [Concomitant]
  5. DYAZIDE [Concomitant]
  6. DILANTIN [Concomitant]

REACTIONS (3)
  - ALOPECIA [None]
  - GRANULOMA ANNULARE [None]
  - RESPIRATORY DISORDER [None]
